FAERS Safety Report 6604704-1 (Version None)
Quarter: 2010Q1

REPORT INFORMATION
  Report Type: 
  Country: None (occurrence: None)
  Receive Date: 20100226
  Receipt Date: 20100222
  Transmission Date: 20100710
  Serious: Yes (Death)
  Sender: FDA-Public Use
  Company Number: VE-ROCHE-686480

PATIENT
  Age: 49 Year
  Sex: Male

DRUGS (1)
  1. PEGASYS [Suspect]
     Indication: HEPATITIS C
     Dosage: FREQUENCY: ONCE
     Route: 058
     Dates: start: 20100203

REACTIONS (1)
  - DEATH [None]
